FAERS Safety Report 9519123 (Version 1)
Quarter: 2013Q3

REPORT INFORMATION
  Report Type: Spontaneous
  Country: US (occurrence: None)
  Receive Date: 20130911
  Receipt Date: 20130911
  Transmission Date: 20140515
  Serious: Yes (Hospitalization)
  Sender: FDA-Public Use
  Company Number: None

PATIENT
  Age: 31 Year
  Sex: Male
  Weight: 92.99 kg

DRUGS (1)
  1. MESALAMINE [Suspect]
     Indication: COLITIS ULCERATIVE
     Dosage: 1-4 PER DAY ONCE DAILY TAKEN BY MOUTH
     Route: 048
     Dates: start: 20110128, end: 20121002

REACTIONS (2)
  - Drug effect decreased [None]
  - Renal failure acute [None]
